FAERS Safety Report 14106489 (Version 1)
Quarter: 2017Q4

REPORT INFORMATION
  Report Type: Spontaneous
  Country: US (occurrence: US)
  Receive Date: 20171019
  Receipt Date: 20171019
  Transmission Date: 20180321
  Serious: No
  Sender: FDA-Public Use
  Company Number: US-JNJFOC-20171011024

PATIENT
  Age: 39 Year
  Sex: Female
  Weight: 53.07 kg

DRUGS (9)
  1. GIANVI [Concomitant]
     Active Substance: DROSPIRENONE\ETHINYL ESTRADIOL
     Indication: CONTRACEPTION
     Dosage: 3/.02MG PER DAY; YEARS
     Route: 065
  2. FISH OIL [Concomitant]
     Active Substance: FISH OIL
     Indication: NUTRITIONAL SUPPLEMENTATION
     Dosage: YEARS
     Route: 065
  3. VALACYCLOVIR [Concomitant]
     Active Substance: VALACYCLOVIR HYDROCHLORIDE
     Indication: HERPES ZOSTER
     Dosage: YEARS
     Route: 065
  4. CLARINEX [Concomitant]
     Active Substance: DESLORATADINE
     Indication: MULTIPLE ALLERGIES
     Dosage: YEARS
     Route: 065
  5. SUDAFED 24 HOUR [Suspect]
     Active Substance: PSEUDOEPHEDRINE HYDROCHLORIDE
     Indication: HEADACHE
     Dosage: ABOUT 2 WEEKS
     Route: 048
     Dates: start: 20170925
  6. SUDAFED 24 HOUR [Suspect]
     Active Substance: PSEUDOEPHEDRINE HYDROCHLORIDE
     Indication: MULTIPLE ALLERGIES
     Dosage: ABOUT 2 WEEKS
     Route: 048
     Dates: start: 20170925
  7. PROPANOLOL [Concomitant]
     Active Substance: PROPRANOLOL HYDROCHLORIDE
     Indication: MIGRAINE
     Dosage: YEARS
     Route: 065
  8. METFORMIN [Concomitant]
     Active Substance: METFORMIN HYDROCHLORIDE
     Indication: POLYCYSTIC OVARIES
     Dosage: YEARS
     Route: 065
  9. SYNTHROID [Concomitant]
     Active Substance: LEVOTHYROXINE SODIUM
     Indication: HYPOTHYROIDISM
     Dosage: YEARS
     Route: 065

REACTIONS (4)
  - Gastrointestinal sounds abnormal [Recovering/Resolving]
  - Flatulence [Recovering/Resolving]
  - Product use in unapproved indication [Recovering/Resolving]
  - Gastric disorder [Recovering/Resolving]

NARRATIVE: CASE EVENT DATE: 20170925
